FAERS Safety Report 9865891 (Version 1)
Quarter: 2014Q1

REPORT INFORMATION
  Report Type: Report from Study
  Country: NL (occurrence: NL)
  Receive Date: 20140203
  Receipt Date: 20140203
  Transmission Date: 20141002
  Serious: Yes (Death)
  Sender: FDA-Public Use
  Company Number: PHHY2014NL012296

PATIENT
  Sex: Female

DRUGS (4)
  1. ZOMETA [Suspect]
     Indication: PLASMA CELL MYELOMA
     Dosage: 4 MG PER 100 ML, ONCE PER 3 MONTHS
     Route: 042
  2. ZOMETA [Suspect]
     Dosage: 4 MG PER 100 ML, ONCE PER 3 MONTHS
     Route: 042
     Dates: start: 20120717
  3. ZOMETA [Suspect]
     Dosage: 4 MG PER 100 ML, ONCE PER 3 MONTHS
     Route: 042
     Dates: start: 20130812
  4. ZOMETA [Suspect]
     Dosage: 4 MG PER 100 ML, ONCE PER 3 MONTHS
     Route: 042
     Dates: start: 20131112

REACTIONS (1)
  - Death [Fatal]
